FAERS Safety Report 11148500 (Version 2)
Quarter: 2015Q2

REPORT INFORMATION
  Report Type: Spontaneous
  Country: US (occurrence: US)
  Receive Date: 20150529
  Receipt Date: 20150618
  Transmission Date: 20150821
  Serious: No
  Sender: FDA-Public Use
  Company Number: US-PFIZER INC-2015168050

PATIENT
  Age: 74 Year
  Sex: Female

DRUGS (9)
  1. GENTAMICIN SULFATE. [Suspect]
     Active Substance: GENTAMICIN SULFATE
     Dosage: 4 DF, DAILY, 0.3 % SOLUTION, 4 DROPS RT EAR 4X A DAY FOR  1 WEEK
     Route: 047
     Dates: start: 20150107
  2. TRIMETHOPRIM. [Suspect]
     Active Substance: TRIMETHOPRIM
     Dosage: 100 MG, DAILY (100 MG TABLET, SIG: TAKE 1 TABLET)
     Route: 048
     Dates: start: 20140801
  3. METOPROLOL TARTRATE. [Suspect]
     Active Substance: METOPROLOL TARTRATE
     Dosage: 50 MG, 2X/DAY (50 MG TABLET, SIG: TAKE 1 TABLET BY MOUTH TWICE A DAY)
     Route: 048
     Dates: start: 20150302
  4. PLAQUENIL [Suspect]
     Active Substance: HYDROXYCHLOROQUINE SULFATE
     Dosage: 400 MG, 1X/DAY (200 MG TABLET, SIG: ROUTE: 2 TABLETS QD)
     Route: 048
     Dates: start: 20141104
  5. WELLBUTRIN SR [Suspect]
     Active Substance: BUPROPION HYDROCHLORIDE
     Dosage: 150 MG, 1X/DAY (150 MG TABLET EXTENDED RELEASE 12 HOUR, 1 QD)
     Route: 048
     Dates: start: 20141209
  6. PANTOPRAZOLE [Suspect]
     Active Substance: PANTOPRAZOLE SODIUM
     Dosage: 40 MG, 2X/DAY (40 MG TABLET (DELAYED RELEASE), SIG- ROUTE: 1 TABLET BY MOUTH )
     Route: 048
     Dates: start: 20141007
  7. FUROSEMIDE. [Suspect]
     Active Substance: FUROSEMIDE
     Dosage: 2 DF, DAILY (40 MG TABLET, SIG: TAKE 2 TABLETS BY MOUTH EVERY DAY)
     Route: 048
     Dates: start: 20150302
  8. TRAZODONE HYDROCHLORIDE. [Suspect]
     Active Substance: TRAZODONE HYDROCHLORIDE
     Dosage: 150 MG, 1DF  AT BEDTIME
     Route: 048
     Dates: start: 20150330
  9. POTASSIUM CHLORIDE. [Suspect]
     Active Substance: POTASSIUM CHLORIDE
     Dosage: UNK, 1X/DAY (10 MEQ TABLET, EXTENDED RELEASE,  1 TAB Q DAY WITH FUROSEMIDE)
     Route: 048
     Dates: start: 20150109

REACTIONS (1)
  - Nasal congestion [Unknown]
